FAERS Safety Report 7994611-4 (Version None)
Quarter: 2011Q4

REPORT INFORMATION
  Report Type: 
  Country: None (occurrence: None)
  Receive Date: 20111220
  Receipt Date: 20111213
  Transmission Date: 20120403
  Serious: Yes (Hospitalization)
  Sender: FDA-Public Use
  Company Number: DE-US-EMD SERONO, INC.-7096656

PATIENT
  Sex: Female

DRUGS (1)
  1. REBIF [Suspect]
     Indication: MULTIPLE SCLEROSIS
     Route: 058
     Dates: start: 20080101, end: 20111212

REACTIONS (4)
  - OVARIAN CANCER [None]
  - METASTASES TO PLEURA [None]
  - THYROID CANCER [None]
  - METASTASES TO LIVER [None]
